FAERS Safety Report 4822706-2 (Version None)
Quarter: 2005Q4

REPORT INFORMATION
  Report Type: 
  Country: None (occurrence: None)
  Receive Date: 20051104
  Receipt Date: 20051024
  Transmission Date: 20060501
  Serious: Yes (Other)
  Sender: FDA-Public Use
  Company Number: 2005BH002579

PATIENT
  Sex: 0

DRUGS (1)
  1. OSMITROL INJECTION IN VIAFLEX PLASTIC CONTAINER [Suspect]
     Indication: DRUG USE FOR UNKNOWN INDICATION
     Dosage: 1 L;EVERY HR; IVBOL
     Route: 040

REACTIONS (2)
  - OSMOLAR GAP ABNORMAL [None]
  - RENAL FAILURE ACUTE [None]
